FAERS Safety Report 5646439-8 (Version None)
Quarter: 2008Q1

REPORT INFORMATION
  Report Type: 
  Country: None (occurrence: None)
  Receive Date: 20080227
  Receipt Date: 20080213
  Transmission Date: 20080703
  Serious: Yes (Other)
  Sender: FDA-Public Use
  Company Number: DSM-2008-00214

PATIENT
  Age: 61 Year
  Sex: Male
  Weight: 93 kg

DRUGS (5)
  1. ALTEIS (OLMESARTAN MEDOXOMIL) (10 MILLIGRAM, TABLET) (OLMESARTAN MEDOX [Suspect]
     Indication: HYPERTENSION
     Dosage: 10 MG (10 MG, 1 IN 1 D), ORAL
     Route: 048
     Dates: start: 20071205, end: 20080131
  2. LODALES (SIMVASTATIN) (SIMVASTATIN) [Suspect]
     Dosage: 10 MG, ORAL
     Route: 048
     Dates: start: 20020101, end: 20080115
  3. CHIBRO-PROSCAR (FINASTERIDE) (FINASTERIDE) [Concomitant]
  4. KARDEGIC (ACETYLSALICYLATE LYSINE) (ACETYLSALICYLATE LYSINE) [Concomitant]
  5. LEXOMIL (BROMAZEPAM) (BROMAZEPAM) [Concomitant]

REACTIONS (6)
  - DIARRHOEA [None]
  - GAMMA-GLUTAMYLTRANSFERASE INCREASED [None]
  - GASTROINTESTINAL PAIN [None]
  - HEPATOMEGALY [None]
  - MUSCULOSKELETAL PAIN [None]
  - VERTIGO [None]
